FAERS Safety Report 7692596-1 (Version None)
Quarter: 2011Q3

REPORT INFORMATION
  Report Type: 
  Country: None (occurrence: None)
  Receive Date: 20110819
  Receipt Date: 20110811
  Transmission Date: 20111222
  Serious: Yes (Hospitalization)
  Sender: FDA-Public Use
  Company Number: US-BIOGENIDEC-2011BI020910

PATIENT
  Age: 48 Year
  Sex: Female

DRUGS (3)
  1. TYSABRI [Suspect]
     Indication: MULTIPLE SCLEROSIS
     Route: 042
     Dates: start: 20101014
  2. METFORMIN [Concomitant]
     Indication: DIABETES MELLITUS
  3. AVONEX [Concomitant]
     Indication: MULTIPLE SCLEROSIS
     Dates: start: 20090807

REACTIONS (3)
  - MULTIPLE SCLEROSIS RELAPSE [None]
  - BLOOD GLUCOSE INCREASED [None]
  - MULTIPLE SCLEROSIS [None]
